FAERS Safety Report 21507479 (Version 1)
Quarter: 2022Q4

REPORT INFORMATION
  Report Type: Spontaneous
  Country: US (occurrence: None)
  Receive Date: 20221025
  Receipt Date: 20221025
  Transmission Date: 20230113
  Serious: Yes (Hospitalization)
  Sender: FDA-Public Use
  Company Number: None

PATIENT
  Sex: Female

DRUGS (1)
  1. VERZENIO [Suspect]
     Active Substance: ABEMACICLIB
     Indication: Breast cancer female
     Dosage: FREQUENCY : TWICE A DAY;?
     Route: 048
     Dates: start: 20211222, end: 20221017

REACTIONS (9)
  - Fall [None]
  - Neck injury [None]
  - Limb injury [None]
  - Chills [None]
  - Hyperhidrosis [None]
  - Arthralgia [None]
  - Alopecia [None]
  - Diarrhoea [None]
  - Therapy change [None]
